FAERS Safety Report 7155738-2 (Version None)
Quarter: 2010Q4

REPORT INFORMATION
  Report Type: 
  Country: None (occurrence: None)
  Receive Date: 20101123
  Receipt Date: 20100920
  Transmission Date: 20110411
  Serious: No
  Sender: FDA-Public Use
  Company Number: 018361

PATIENT
  Sex: Female
  Weight: 47 kg

DRUGS (13)
  1. CIMZIA [Suspect]
     Indication: CROHN'S DISEASE
     Dosage: (400 MG 1X/28 DAYS SUBCUTANEOUS) (400 MG 1X/28 DAYS SUBCUTANEOUS)
     Route: 058
     Dates: start: 20100826
  2. CIMZIA [Suspect]
     Indication: CROHN'S DISEASE
     Dosage: (400 MG 1X/28 DAYS SUBCUTANEOUS) (400 MG 1X/28 DAYS SUBCUTANEOUS)
     Route: 058
     Dates: start: 20100920
  3. GABAPENTIN [Concomitant]
  4. ADDERALL 10 [Concomitant]
  5. ADDERALL XR 10 [Concomitant]
  6. ATIVAN [Concomitant]
  7. DILTIAZEM [Concomitant]
  8. NEXIUM [Concomitant]
  9. VARENICLINE [Concomitant]
  10. PAROXETINE HCL [Concomitant]
  11. FLOVENT [Concomitant]
  12. PAROXETIN /00830801/ [Concomitant]
  13. CIMZIA [Suspect]

REACTIONS (10)
  - DIZZINESS [None]
  - FLUSHING [None]
  - HEADACHE [None]
  - JOINT STIFFNESS [None]
  - MUSCULOSKELETAL STIFFNESS [None]
  - NAUSEA [None]
  - OEDEMA [None]
  - PARAESTHESIA [None]
  - RASH [None]
  - URINARY TRACT INFECTION [None]
